FAERS Safety Report 18870702 (Version 1)
Quarter: 2021Q1

REPORT INFORMATION
  Report Type: Spontaneous
  Country: US (occurrence: US)
  Receive Date: 20210209
  Receipt Date: 20210209
  Transmission Date: 20210420
  Serious: Yes (Other)
  Sender: FDA-Public Use
  Company Number: US-ROCHE-2759560

PATIENT
  Sex: Female

DRUGS (3)
  1. HERCEPTIN [Suspect]
     Active Substance: TRASTUZUMAB
     Indication: BREAST CANCER
     Route: 065
     Dates: start: 201301, end: 2020
  2. KADCYLA [Suspect]
     Active Substance: ADO-TRASTUZUMAB EMTANSINE
     Indication: PRODUCT USED FOR UNKNOWN INDICATION
     Route: 065
     Dates: start: 202012
  3. PERJETA [Suspect]
     Active Substance: PERTUZUMAB
     Indication: BREAST CANCER
     Route: 065
     Dates: start: 2013, end: 2018

REACTIONS (8)
  - Bone cancer [Unknown]
  - Ejection fraction decreased [Recovered/Resolved]
  - Bone infarction [Unknown]
  - Brain neoplasm [Recovered/Resolved]
  - Therapeutic product ineffective [Unknown]
  - Gastrointestinal disorder [Unknown]
  - Cardiomyopathy [Unknown]
  - Fall [Unknown]

NARRATIVE: CASE EVENT DATE: 2015
